FAERS Safety Report 4298999-X (Version None)
Quarter: 2004Q1

REPORT INFORMATION
  Report Type: 
  Country: None (occurrence: None)
  Receive Date: 20040217
  Receipt Date: 20040203
  Transmission Date: 20041129
  Serious: Yes (Hospitalization)
  Sender: FDA-Public Use
  Company Number: 2004CG00229

PATIENT
  Age: 69 Year
  Sex: Female

DRUGS (2)
  1. ZOMIG [Suspect]
     Indication: HEADACHE
     Dates: end: 20031109
  2. ACETAMINOPHEN W/ CODEINE [Concomitant]

REACTIONS (3)
  - DRUG DEPENDENCE [None]
  - HEADACHE [None]
  - MEDICATION ERROR [None]
